FAERS Safety Report 20914536 (Version 1)
Quarter: 2022Q2

REPORT INFORMATION
  Report Type: Spontaneous
  Country: US (occurrence: US)
  Receive Date: 20220604
  Receipt Date: 20220604
  Transmission Date: 20220721
  Serious: No
  Sender: FDA-Public Use
  Company Number: US-SANOFI-01110535

PATIENT
  Age: 89 Year
  Sex: Female

DRUGS (1)
  1. TOUJEO MAX [Suspect]
     Active Substance: INSULIN GLARGINE
     Indication: Type 2 diabetes mellitus
     Dosage: DRUG STRUCTURE DOSAGE : 22 UNITS AM 10 UNITS PM DRUG INTERVAL DOSAGE : TWICE DAILY DRUG TREATMENT DU

REACTIONS (2)
  - Off label use [Unknown]
  - Inappropriate schedule of product administration [Unknown]
